FAERS Safety Report 4648636-7 (Version None)
Quarter: 2005Q2

REPORT INFORMATION
  Report Type: 
  Country: None (occurrence: None)
  Receive Date: 20050427
  Receipt Date: 20050419
  Transmission Date: 20051028
  Serious: Yes (Other)
  Sender: FDA-Public Use
  Company Number: 2005061525

PATIENT
  Age: 73 Year
  Sex: Male

DRUGS (6)
  1. LIPITOR [Suspect]
     Indication: ILL-DEFINED DISORDER
     Dosage: 10 MG (1 IN 1 D), ORAL
     Route: 048
     Dates: start: 20010926, end: 20050131
  2. ISOSORBIDE DINITRATE [Concomitant]
  3. WARFARIN SODIUM [Concomitant]
  4. TICLOPIDINE HCL [Concomitant]
  5. RANITIDINE HYDROCHLORIDE [Concomitant]
  6. PIRMENOL HYDROCHLORIDE (PIRMENOL HYDROCHLORIDE) [Concomitant]

REACTIONS (2)
  - BLOOD CHOLESTEROL INCREASED [None]
  - INTERSTITIAL LUNG DISEASE [None]
